FAERS Safety Report 10034942 (Version 1)
Quarter: 2014Q1

REPORT INFORMATION
  Report Type: Spontaneous
  Country: US (occurrence: None)
  Receive Date: 20140321
  Receipt Date: 20140321
  Transmission Date: 20141002
  Serious: Yes (Other)
  Sender: FDA-Public Use
  Company Number: ADR-2014-00336

PATIENT
  Sex: Female

DRUGS (12)
  1. BACLOFEN [Suspect]
     Indication: MUSCLE SPASTICITY
  2. SYNTHROID [Suspect]
  3. FOSAMAX [Suspect]
  4. ARICEPT [Suspect]
  5. BACLOFEN [Suspect]
  6. BACLOFEN [Suspect]
  7. OMEPRAZOLE [Suspect]
  8. LIPITOR [Suspect]
  9. CYMBALTA [Suspect]
  10. ASPIRIN [Suspect]
  11. ELAVIL [Suspect]
  12. DOMPERIDONE [Suspect]

REACTIONS (2)
  - Cerebrospinal fluid leakage [None]
  - Incision site oedema [None]
